FAERS Safety Report 10156549 (Version 2)
Quarter: 2014Q3

REPORT INFORMATION
  Report Type: Spontaneous
  Country: CZ (occurrence: None)
  Receive Date: 20140505
  Receipt Date: 20140926
  Transmission Date: 20150326
  Serious: Yes (Other)
  Sender: FDA-Public Use
  Company Number: 2014-19472

PATIENT
  Age: 64 Year
  Sex: Male
  Weight: 90 kg

DRUGS (4)
  1. VASOCARDIN (METOPROLOL TARTRATE) [Concomitant]
  2. INSULIN (INSULIN) [Concomitant]
     Active Substance: INSULIN NOS
  3. BETOPTIC (BETAXOLOL HYDROCHLORIDE) [Concomitant]
  4. VEGF TRAP-EYE [Suspect]
     Active Substance: AFLIBERCEPT
     Indication: DIABETIC RETINAL OEDEMA

REACTIONS (2)
  - Vitreous haemorrhage [None]
  - Eye haemorrhage [None]

NARRATIVE: CASE EVENT DATE: 20140412
